FAERS Safety Report 21278349 (Version 2)
Quarter: 2022Q3

REPORT INFORMATION
  Report Type: Spontaneous
  Country: None (occurrence: DE)
  Receive Date: 20220831
  Receipt Date: 20220928
  Transmission Date: 20221027
  Serious: Yes (Other)
  Sender: FDA-Public Use
  Company Number: DE-Ascend Therapeutics US, LLC-2132437

PATIENT
  Age: 58 Year
  Sex: Female
  Weight: 70 kg

DRUGS (5)
  1. ESTROGEL [Suspect]
     Active Substance: ESTRADIOL
     Indication: Hormone replacement therapy
     Route: 065
     Dates: start: 202207
  2. ESTROGEL [Suspect]
     Active Substance: ESTRADIOL
  3. ESTRADIOL HEMIHYDRATE [Suspect]
     Active Substance: ESTRADIOL HEMIHYDRATE
     Route: 065
     Dates: start: 202207
  4. PROGESTERONE [Suspect]
     Active Substance: PROGESTERONE
     Route: 065
     Dates: start: 202207
  5. vitamin D3(COLECALCIFEROL) [Concomitant]
     Route: 065

REACTIONS (10)
  - Skin cancer [Unknown]
  - Arthralgia [Recovering/Resolving]
  - Insomnia [Unknown]
  - Anxiety [Unknown]
  - Fear [Unknown]
  - Malaise [Unknown]
  - Sleep disorder [Unknown]
  - Blood oestrogen decreased [Unknown]
  - Serotonin deficiency [Unknown]
  - Therapeutic product effect decreased [None]

NARRATIVE: CASE EVENT DATE: 20220101
